FAERS Safety Report 5863383-1 (Version None)
Quarter: 2008Q3

REPORT INFORMATION
  Report Type: 
  Country: None (occurrence: None)
  Receive Date: 20080828
  Receipt Date: 20080821
  Transmission Date: 20090109
  Serious: Yes (Hospitalization, Other)
  Sender: FDA-Public Use
  Company Number: PHHY2008BR18636

PATIENT
  Age: 86 Year
  Sex: Female

DRUGS (1)
  1. EXELON [Suspect]
     Indication: DEMENTIA ALZHEIMER'S TYPE
     Dosage: 4.5 MG, UNK
     Dates: start: 20080820

REACTIONS (5)
  - HYPERTENSION [None]
  - NERVOUS SYSTEM DISORDER [None]
  - PARKINSON'S DISEASE [None]
  - SPEECH DISORDER [None]
  - TREMOR [None]
